FAERS Safety Report 7770770-3 (Version None)
Quarter: 2011Q3

REPORT INFORMATION
  Report Type: 
  Country: None (occurrence: None)
  Receive Date: 20110922
  Receipt Date: 20110623
  Transmission Date: 20111222
  Serious: No
  Sender: FDA-Public Use
  Company Number: US-ASTRAZENECA-2010SE32537

PATIENT
  Age: 51 Year
  Sex: Female
  Weight: 122.5 kg

DRUGS (23)
  1. SEROQUEL XR [Suspect]
     Indication: BIPOLAR DISORDER
     Route: 048
  2. MELOXICAM [Concomitant]
  3. SEROQUEL XR [Suspect]
     Route: 048
  4. MOBIC [Concomitant]
  5. METHADONE HCL [Concomitant]
  6. FADASTATIN [Concomitant]
  7. PAIN MEDICATION [Concomitant]
  8. SEROQUEL XR [Suspect]
     Indication: DEPRESSION
     Route: 048
  9. SEROQUEL XR [Suspect]
     Route: 048
  10. GABAPENTIN [Concomitant]
  11. FUROSEMIDE [Concomitant]
  12. FEXFENADINE [Concomitant]
  13. TIZANIDINE HCL [Concomitant]
  14. KLOR-CON [Concomitant]
  15. FISH OIL [Concomitant]
  16. GABEPENTIN [Concomitant]
  17. AMYTRIPTYLINE [Concomitant]
  18. SEROQUEL XR [Suspect]
     Route: 048
  19. SEROQUEL XR [Suspect]
     Route: 048
  20. BYSTOLIC [Concomitant]
  21. SAMVASTIN [Concomitant]
  22. HYDRALAZINE HCL [Concomitant]
  23. HYDROCODONE [Concomitant]

REACTIONS (8)
  - IRRITABILITY [None]
  - HYPERHIDROSIS [None]
  - AGGRESSION [None]
  - AGITATION [None]
  - INCORRECT DOSE ADMINISTERED [None]
  - DRUG DOSE OMISSION [None]
  - DEPRESSION [None]
  - DRY MOUTH [None]
